FAERS Safety Report 9796689 (Version 3)
Quarter: 2014Q1

REPORT INFORMATION
  Report Type: Spontaneous
  Country: US (occurrence: US)
  Receive Date: 20140103
  Receipt Date: 20140319
  Transmission Date: 20141002
  Serious: Yes (Death, Life-Threatening, Hospitalization, Other)
  Sender: FDA-Public Use
  Company Number: US-CELGENEUS-163-POMAL-13125076

PATIENT
  Age: 63 Year
  Sex: Male

DRUGS (19)
  1. POMALYST [Suspect]
     Indication: PLASMA CELL MYELOMA
     Dosage: 4 MILLIGRAM
     Route: 048
     Dates: start: 20131205, end: 20131221
  2. DECADRON (DEXAMETHASONE) [Suspect]
     Indication: PRODUCT USED FOR UNKNOWN INDICATION
     Route: 065
     Dates: start: 201106
  3. DECADRON (DEXAMETHASONE) [Suspect]
     Route: 065
     Dates: start: 201201
  4. DECADRON (DEXAMETHASONE) [Suspect]
     Route: 065
     Dates: start: 201209
  5. DECADRON (DEXAMETHASONE) [Suspect]
     Route: 065
     Dates: start: 201303, end: 201304
  6. DECADRON (DEXAMETHASONE) [Suspect]
     Route: 065
     Dates: start: 201308
  7. VITAMIN B12 [Concomitant]
     Indication: PRODUCT USED FOR UNKNOWN INDICATION
     Dosage: 1000 MICROGRAM
     Route: 048
  8. DOXAZOSIN [Concomitant]
     Indication: PRODUCT USED FOR UNKNOWN INDICATION
     Dosage: 2 MILLIGRAM
     Route: 048
     Dates: start: 2013
  9. FOLIC ACID [Concomitant]
     Indication: PRODUCT USED FOR UNKNOWN INDICATION
     Dosage: 1 MILLIGRAM
     Route: 048
     Dates: start: 20130905
  10. ENSURE [Concomitant]
     Indication: PRODUCT USED FOR UNKNOWN INDICATION
     Dosage: 1 BOTTLE
     Route: 048
     Dates: start: 20131031
  11. HYDROCODONE ACETAMINOPHEN [Concomitant]
     Indication: PRODUCT USED FOR UNKNOWN INDICATION
     Dosage: 5-325MG
     Route: 048
     Dates: start: 20131005
  12. HYDROCODONE ACETAMINOPHEN [Concomitant]
     Dosage: 5-325MG
     Route: 048
     Dates: start: 20131026
  13. DUO-NEB [Concomitant]
     Indication: PRODUCT USED FOR UNKNOWN INDICATION
     Dosage: 10 MILLIGRAM
     Route: 065
     Dates: start: 20131117, end: 20140102
  14. PROCHLORPERAZINE [Concomitant]
     Indication: PRODUCT USED FOR UNKNOWN INDICATION
     Route: 048
     Dates: start: 20131205
  15. QVAR [Concomitant]
     Indication: PRODUCT USED FOR UNKNOWN INDICATION
     Route: 055
     Dates: start: 20130705
  16. QVAR [Concomitant]
     Route: 055
     Dates: start: 20130816
  17. AMBIEN [Concomitant]
     Indication: PRODUCT USED FOR UNKNOWN INDICATION
     Route: 048
     Dates: start: 20130705
  18. CIPROFLOXACIN [Concomitant]
     Indication: URINARY TRACT INFECTION
     Dosage: 500 MILLIGRAM
     Route: 065
     Dates: start: 201312
  19. CIPROFLOXACIN [Concomitant]
     Indication: SEPSIS

REACTIONS (2)
  - Hepatic failure [Fatal]
  - Hepatitis B [Fatal]
